FAERS Safety Report 4751259-2 (Version None)
Quarter: 2005Q3

REPORT INFORMATION
  Report Type: 
  Country: None (occurrence: None)
  Receive Date: 20050822
  Receipt Date: 20050809
  Transmission Date: 20060218
  Serious: Yes (Other)
  Sender: FDA-Public Use
  Company Number: 2005113125

PATIENT
  Sex: Female

DRUGS (1)
  1. DETROL LA [Suspect]
     Indication: ILL-DEFINED DISORDER

REACTIONS (6)
  - ANORECTAL DISORDER [None]
  - ANXIETY [None]
  - CYSTITIS [None]
  - LARGE INTESTINE OPERATION [None]
  - URINARY INCONTINENCE [None]
  - VAGINOPLASTY [None]
